FAERS Safety Report 7561773-2 (Version None)
Quarter: 2011Q2

REPORT INFORMATION
  Report Type: 
  Country: None (occurrence: None)
  Receive Date: 20110621
  Receipt Date: 20110616
  Transmission Date: 20111010
  Serious: Yes (Hospitalization, Other)
  Sender: FDA-Public Use
  Company Number: US-PFIZER INC-2010006451

PATIENT
  Sex: Male

DRUGS (1)
  1. CHANTIX [Suspect]
     Indication: SMOKING CESSATION THERAPY
     Dosage: UNK
     Dates: start: 20080501, end: 20080601

REACTIONS (8)
  - SUICIDE ATTEMPT [None]
  - SLEEP DISORDER [None]
  - MENTAL DISORDER [None]
  - DEPRESSION [None]
  - DRUG ABUSE [None]
  - HALLUCINATION [None]
  - PSYCHOTIC BEHAVIOUR [None]
  - INTENTIONAL OVERDOSE [None]
